FAERS Safety Report 6925518-9 (Version None)
Quarter: 2010Q3

REPORT INFORMATION
  Report Type: 
  Country: None (occurrence: None)
  Receive Date: 20100816
  Receipt Date: 20100806
  Transmission Date: 20110219
  Serious: Yes (Other)
  Sender: FDA-Public Use
  Company Number: US-NOVOPROD-312736

PATIENT
  Age: 13 Year
  Sex: Female
  Weight: 33.107 kg

DRUGS (8)
  1. NORDITROPIN NORDIFLEX [Suspect]
     Indication: GROWTH HORMONE DEFICIENCY
     Dosage: 1.6 U, QD SKIP EVERY 7TH DAY
     Route: 058
     Dates: start: 20100601
  2. NORDITROPIN NORDIFLEX [Suspect]
     Indication: BODY HEIGHT BELOW NORMAL
     Dosage: 1.6 U, QD SKIP EVERY 7TH DAY
  3. AXID [Concomitant]
     Indication: FAILURE TO THRIVE
  4. AXID [Concomitant]
     Indication: DEVICE OCCLUSION
  5. FLEXERIL [Concomitant]
     Indication: ARTHRITIS
     Dosage: UNK
  6. ZYRTEC [Concomitant]
     Indication: MULTIPLE ALLERGIES
     Dosage: UNK
  7. SYNTHROID [Concomitant]
     Indication: HYPOTHYROIDISM
     Dosage: UNK
  8. COQ10 [Concomitant]
     Indication: PRODUCT USED FOR UNKNOWN INDICATION
     Dosage: UNK

REACTIONS (3)
  - BLOOD PRESSURE INCREASED [None]
  - CARDIOMEGALY [None]
  - HEART RATE INCREASED [None]
